FAERS Safety Report 25482624 (Version 1)
Quarter: 2025Q2

REPORT INFORMATION
  Report Type: Spontaneous
  Country: GB (occurrence: GB)
  Receive Date: 20250626
  Receipt Date: 20250626
  Transmission Date: 20250717
  Serious: Yes (Hospitalization)
  Sender: STRIDES
  Company Number: GB-STRIDES ARCOLAB LIMITED-2025SP007579

PATIENT
  Sex: Male

DRUGS (6)
  1. MORPHINE SULFATE [Suspect]
     Active Substance: MORPHINE SULFATE
     Indication: Symptomatic treatment
     Route: 065
  2. MORPHINE SULFATE [Suspect]
     Active Substance: MORPHINE SULFATE
     Indication: Splenomegaly
  3. CYCLIZINE [Suspect]
     Active Substance: CYCLIZINE
     Indication: Symptomatic treatment
     Route: 065
  4. CYCLIZINE [Suspect]
     Active Substance: CYCLIZINE
     Indication: Splenomegaly
  5. DEXAMETHASONE [Suspect]
     Active Substance: DEXAMETHASONE
     Indication: Symptomatic treatment
     Route: 065
  6. DEXAMETHASONE [Suspect]
     Active Substance: DEXAMETHASONE
     Indication: Splenomegaly

REACTIONS (4)
  - Haemoglobin decreased [Recovered/Resolved]
  - Metabolic acidosis [Recovered/Resolved]
  - Condition aggravated [Unknown]
  - Off label use [Unknown]
